FAERS Safety Report 4568259-8 (Version None)
Quarter: 2005Q1

REPORT INFORMATION
  Report Type: 
  Country: None (occurrence: None)
  Receive Date: 20050131
  Receipt Date: 20050117
  Transmission Date: 20050727
  Serious: Yes (Death, Life-Threatening)
  Sender: FDA-Public Use
  Company Number: 2005CG00060

PATIENT
  Age: 75 Year
  Sex: Male

DRUGS (5)
  1. OMEPRAZOLE [Suspect]
     Dosage: 20 MG DAILY PO
     Route: 048
     Dates: start: 20040102, end: 20041217
  2. PROZAC [Suspect]
     Dosage: 20 MG DAILY PO
     Route: 048
     Dates: end: 20041217
  3. CLINOMEL [Suspect]
     Dosage: 2 L DAILY IV
     Route: 042
     Dates: start: 20041213, end: 20041218
  4. CORDARONE [Suspect]
     Dosage: 200 MG DAILY PO
     Route: 048
     Dates: end: 20041217
  5. PREVISCAN [Suspect]
     Dosage: 20 MG DAILY PO
     Route: 048
     Dates: end: 20041217

REACTIONS (12)
  - ASCITES [None]
  - CYTOLYTIC HEPATITIS [None]
  - CYTOMEGALOVIRUS INFECTION [None]
  - FACE OEDEMA [None]
  - HEPATITIS FULMINANT [None]
  - HERPES ZOSTER [None]
  - HYPOALBUMINAEMIA [None]
  - HYPONATRAEMIA [None]
  - MULTI-ORGAN FAILURE [None]
  - OEDEMA PERIPHERAL [None]
  - PROTHROMBIN LEVEL DECREASED [None]
  - RENAL FAILURE [None]
